FAERS Safety Report 15899627 (Version 4)
Quarter: 2020Q2

REPORT INFORMATION
  Report Type: Spontaneous
  Country: US (occurrence: US)
  Receive Date: 20190201
  Receipt Date: 20200511
  Transmission Date: 20200713
  Serious: No
  Sender: FDA-Public Use
  Company Number: US-PFIZER INC-2016049865

PATIENT
  Sex: Female
  Weight: 70 kg

DRUGS (19)
  1. LYRICA [Suspect]
     Active Substance: PREGABALIN
     Dosage: 200 MG, 3X/DAY
     Route: 048
     Dates: start: 20190129
  2. PROGESTERONE. [Concomitant]
     Active Substance: PROGESTERONE
     Indication: HORMONE LEVEL ABNORMAL
     Dosage: 100 MG, ALTERNATE DAY (1 CAPSULE EVERY OTHER DAY)
     Dates: start: 201812
  3. LYRICA [Suspect]
     Active Substance: PREGABALIN
     Dosage: 200 MG, 3X/DAY
     Route: 048
     Dates: start: 201810, end: 201812
  4. LYRICA [Suspect]
     Active Substance: PREGABALIN
     Dosage: 200 MG, 3X/DAY
     Route: 048
     Dates: start: 20190620
  5. LYRICA [Suspect]
     Active Substance: PREGABALIN
     Indication: DIABETIC NEUROPATHY
     Dosage: 200 MG, 2X/DAY
     Route: 048
     Dates: start: 20160714
  6. LYRICA [Suspect]
     Active Substance: PREGABALIN
     Dosage: 200 MG, 2X/DAY
     Route: 048
     Dates: start: 20161205
  7. LYRICA [Suspect]
     Active Substance: PREGABALIN
     Indication: POLYNEUROPATHY
     Dosage: 100 MG, 2X/DAY
     Route: 048
     Dates: start: 20160119
  8. HYDROCHLOROTHIAZIDE. [Concomitant]
     Active Substance: HYDROCHLOROTHIAZIDE
     Indication: HYPERTENSION
     Dosage: 25 MG, DAILY
  9. TRAMADOL. [Concomitant]
     Active Substance: TRAMADOL
     Indication: PAIN
     Dosage: 50 MG, 3X/DAY
  10. METHIMAZOLE. [Concomitant]
     Active Substance: METHIMAZOLE
     Indication: THYROID DISORDER
     Dosage: 5 MG, DAILY(10MG TABLET, TAKES HALF DAILY)
  11. METFORMIN [Concomitant]
     Active Substance: METFORMIN HYDROCHLORIDE
     Indication: DIABETES MELLITUS
     Dosage: 500 MG, 2X/DAY
  12. GEMFIBROZIL. [Concomitant]
     Active Substance: GEMFIBROZIL
     Indication: BLOOD TRIGLYCERIDES
     Dosage: 600 MG, 2X/DAY
  13. BUTALBITAL/CAFFEINE/PARACETAMOL [Concomitant]
     Active Substance: ACETAMINOPHEN\BUTALBITAL\CAFFEINE
     Dosage: UNK, AS NEEDED (BUTALBITAL: 50/ACETAMINOPHEN: 325/CAFFEINE: 40)
  14. BUTALBITAL/CAFFEINE/PARACETAMOL [Concomitant]
     Active Substance: ACETAMINOPHEN\BUTALBITAL\CAFFEINE
     Dosage: UNK, AS NEEDED (BUTALBITAL: 50/ACETAMINOPHEN: 325/CAFFEINE: 40)
  15. METOPROLOL. [Concomitant]
     Active Substance: METOPROLOL
     Indication: HYPERTENSION
     Dosage: 25 MG, DAILY
  16. LYRICA [Suspect]
     Active Substance: PREGABALIN
     Dosage: 200 MG, 2X/DAY
     Route: 048
     Dates: start: 20170724
  17. LYRICA [Suspect]
     Active Substance: PREGABALIN
     Dosage: 200 MG, 2X/DAY
     Route: 048
     Dates: start: 20160923
  18. FUROSEMIDE. [Concomitant]
     Active Substance: FUROSEMIDE
     Indication: FLUID REPLACEMENT
     Dosage: 20 MG, DAILY
  19. BUTALBITAL/CAFFEINE/PARACETAMOL [Concomitant]
     Active Substance: ACETAMINOPHEN\BUTALBITAL\CAFFEINE
     Indication: MIGRAINE
     Dosage: UNK, AS NEEDED (BUTALBITAL: 50/ACETAMINOPHEN: 325/CAFFEINE: 40)

REACTIONS (1)
  - No adverse event [Unknown]
